FAERS Safety Report 9719125 (Version 1)
Quarter: 2013Q4

REPORT INFORMATION
  Report Type: Spontaneous
  Country: US (occurrence: US)
  Receive Date: 20131127
  Receipt Date: 20131127
  Transmission Date: 20140711
  Serious: Yes (Hospitalization)
  Sender: FDA-Public Use
  Company Number: CHPA2013US017443

PATIENT
  Age: 77 Year
  Sex: Female

DRUGS (6)
  1. VOLTAREN GEL [Suspect]
     Indication: CARPAL TUNNEL SYNDROME
     Dosage: UNK
     Route: 061
     Dates: start: 201311, end: 201311
  2. VOLTAREN GEL [Suspect]
     Indication: OFF LABEL USE
     Dosage: UNK
     Route: 065
  3. VOLTAREN GEL [Suspect]
     Indication: BACK INJURY
  4. VOLTAREN GEL [Suspect]
     Indication: OFF LABEL USE
  5. VOLTAREN GEL [Suspect]
     Indication: OFF LABEL USE
  6. PREDNISONE [Concomitant]

REACTIONS (13)
  - Fall [Unknown]
  - Head injury [Unknown]
  - Mouth injury [Recovering/Resolving]
  - Back injury [Unknown]
  - Laceration [Unknown]
  - Gait disturbance [Unknown]
  - Pain [Unknown]
  - Carpal tunnel syndrome [Recovered/Resolved]
  - Blood glucose increased [Recovered/Resolved]
  - Memory impairment [Not Recovered/Not Resolved]
  - Bursitis [Not Recovered/Not Resolved]
  - Depressed mood [Not Recovered/Not Resolved]
  - Wrong technique in drug usage process [Unknown]
